FAERS Safety Report 16143892 (Version 1)
Quarter: 2019Q2

REPORT INFORMATION
  Report Type: Other
  Country: CN (occurrence: CN)
  Receive Date: 20190401
  Receipt Date: 20190401
  Transmission Date: 20190711
  Serious: Yes (Other)
  Sender: FDA-Public Use
  Company Number: CN-GE HEALTHCARE LIFE SCIENCES-2019CSU001760

PATIENT

DRUGS (2)
  1. VISIPAQUE [Suspect]
     Active Substance: IODIXANOL
     Indication: ANGINA UNSTABLE
  2. VISIPAQUE [Suspect]
     Active Substance: IODIXANOL
     Indication: CARDIAC IMAGING PROCEDURE
     Dosage: 200 ML, PUMPED INJECTION; SINGLE
     Route: 042
     Dates: start: 20190226, end: 20190226

REACTIONS (6)
  - Delirium [Recovering/Resolving]
  - Tremor [Recovering/Resolving]
  - Mental disorder [Recovering/Resolving]
  - Petit mal epilepsy [Recovering/Resolving]
  - Loss of consciousness [Recovering/Resolving]
  - Muscle spasms [Recovering/Resolving]

NARRATIVE: CASE EVENT DATE: 20190226
